FAERS Safety Report 17807251 (Version 1)
Quarter: 2020Q2

REPORT INFORMATION
  Report Type: Spontaneous
  Country: IR (occurrence: IR)
  Receive Date: 20200520
  Receipt Date: 20200520
  Transmission Date: 20200714
  Serious: Yes (Other)
  Sender: FDA-Public Use
  Company Number: IR-MICRO LABS LIMITED-ML2020-01596

PATIENT
  Age: 19 Year
  Sex: Female

DRUGS (5)
  1. LACTATED RINGERS SOLUTION [Concomitant]
     Active Substance: CALCIUM CHLORIDE\POTASSIUM CHLORIDE\SODIUM CHLORIDE\SODIUM LACTATE
  2. OXYTOCIN. [Concomitant]
     Active Substance: OXYTOCIN
     Dosage: 30 UNITS IN ONE LITER RINGER^S LACTATE
  3. GENTAMICIN. [Concomitant]
     Active Substance: GENTAMICIN
     Route: 042
  4. NORMAL SALINE [Concomitant]
     Active Substance: SODIUM CHLORIDE
  5. CLINDAMYCIN. [Suspect]
     Active Substance: CLINDAMYCIN
     Route: 042

REACTIONS (1)
  - Sinus bradycardia [Recovering/Resolving]
